FAERS Safety Report 12576335 (Version 2)
Quarter: 2016Q4

REPORT INFORMATION
  Report Type: Spontaneous
  Country: US (occurrence: US)
  Receive Date: 20160720
  Receipt Date: 20161026
  Transmission Date: 20170207
  Serious: Yes (Hospitalization)
  Sender: FDA-Public Use
  Company Number: US-JNJFOC-20160711485

PATIENT
  Age: 93 Year
  Sex: Female

DRUGS (6)
  1. XARELTO [Suspect]
     Active Substance: RIVAROXABAN
     Indication: ATRIAL FIBRILLATION
     Dosage: VARYING DOSES OF 10 AND 15 MG...THE PATIENT WAS ON 15 MG 1 TABLET BY MOUTH DAILY
     Route: 048
     Dates: start: 20130823, end: 20140724
  2. XARELTO [Suspect]
     Active Substance: RIVAROXABAN
     Indication: THROMBOSIS PROPHYLAXIS
     Dosage: VARYING DOSES OF 10 AND 15 MG...THE PATIENT WAS ON 15 MG 1 TABLET BY MOUTH DAILY
     Route: 048
     Dates: start: 20130823, end: 20140724
  3. XARELTO [Suspect]
     Active Substance: RIVAROXABAN
     Indication: ATRIAL FIBRILLATION
     Dosage: VARYING DOSES OF 10 AND 15 MG...THE PATIENT WAS ON 15 MG 1 TABLET BY MOUTH DAILY
     Route: 048
     Dates: start: 20130823, end: 20140724
  4. ASPIRIN. [Suspect]
     Active Substance: ASPIRIN
     Indication: CEREBROVASCULAR ACCIDENT PROPHYLAXIS
     Route: 048
  5. XARELTO [Suspect]
     Active Substance: RIVAROXABAN
     Indication: CEREBROVASCULAR ACCIDENT PROPHYLAXIS
     Dosage: VARYING DOSES OF 10 AND 15 MG...THE PATIENT WAS ON 15 MG 1 TABLET BY MOUTH DAILY
     Route: 048
     Dates: start: 20130823, end: 20140724
  6. ASPIRIN. [Suspect]
     Active Substance: ASPIRIN
     Indication: ATRIAL FIBRILLATION
     Route: 048

REACTIONS (6)
  - Thrombosis [Unknown]
  - Fall [Unknown]
  - Cerebral atrophy [Unknown]
  - Acute kidney injury [Unknown]
  - Subgaleal haematoma [Recovering/Resolving]
  - Intraventricular haemorrhage [Unknown]

NARRATIVE: CASE EVENT DATE: 201407
